FAERS Safety Report 5612984-4 (Version None)
Quarter: 2008Q1

REPORT INFORMATION
  Report Type: 
  Country: None (occurrence: None)
  Receive Date: 20080204
  Receipt Date: 20080122
  Transmission Date: 20080703
  Serious: Yes (Other)
  Sender: FDA-Public Use
  Company Number: NL-RANBAXY-2008RR-12776

PATIENT

DRUGS (2)
  1. AMLODIPINE BASICS 5MG TABLETS [Suspect]
     Indication: HYPERTENSION
     Dosage: 5 MG, QD
  2. HYDROCHLOROTHIAZIDE/VALSARTAN [Concomitant]

REACTIONS (2)
  - PHOTODERMATOSIS [None]
  - PHOTOSENSITIVITY REACTION [None]
